FAERS Safety Report 8232112-9 (Version None)
Quarter: 2012Q1

REPORT INFORMATION
  Report Type: 
  Country: None (occurrence: None)
  Receive Date: 20120323
  Receipt Date: 20120314
  Transmission Date: 20120608
  Serious: Yes (Hospitalization)
  Sender: FDA-Public Use
  Company Number: GB-ROCHE-1044983

PATIENT
  Sex: Male
  Weight: 89.9 kg

DRUGS (2)
  1. VEMURAFENIB [Suspect]
     Route: 048
     Dates: start: 20120305
  2. VEMURAFENIB [Suspect]
     Indication: MALIGNANT MELANOMA
     Dosage: LAST DOSE: 27 FEB 2012
     Route: 048
     Dates: start: 20120209, end: 20120227

REACTIONS (1)
  - PANCREATITIS [None]
